FAERS Safety Report 9231885 (Version 1)
Quarter: 2013Q2

REPORT INFORMATION
  Report Type: Spontaneous
  Country: DE (occurrence: DE)
  Receive Date: 20130415
  Receipt Date: 20130415
  Transmission Date: 20140414
  Serious: Yes (Life-Threatening, Disabling, Other)
  Sender: FDA-Public Use
  Company Number: DE-WATSON-2013-05949

PATIENT
  Age: 65 Year
  Sex: Female

DRUGS (7)
  1. CHLOROQUINE [Suspect]
     Indication: RHEUMATOID ARTHRITIS
     Dosage: 250 MG, DAILY
     Route: 065
  2. NAPROXEN [Concomitant]
     Indication: PRODUCT USED FOR UNKNOWN INDICATION
     Dosage: 500 MG, BID
     Route: 065
  3. PREDNISOLONE [Concomitant]
     Indication: PRODUCT USED FOR UNKNOWN INDICATION
     Dosage: 15 MG, UNKNOWN
     Route: 065
  4. OXYCODONE [Concomitant]
     Indication: PRODUCT USED FOR UNKNOWN INDICATION
     Dosage: 40 MG, UNKNOWN
     Route: 065
  5. NEBIVOLOL [Concomitant]
     Indication: PRODUCT USED FOR UNKNOWN INDICATION
     Dosage: 2.5 MG, UNKNOWN
     Route: 065
  6. TORSEMIDE [Concomitant]
     Indication: PRODUCT USED FOR UNKNOWN INDICATION
     Dosage: 10 MG, UNKNOWN
     Route: 065
  7. PANTOPRAZOLE [Concomitant]
     Indication: PRODUCT USED FOR UNKNOWN INDICATION
     Dosage: 40 MG, UNKNOWN
     Route: 065

REACTIONS (9)
  - Syncope [Recovered/Resolved]
  - Atrioventricular block complete [Not Recovered/Not Resolved]
  - Hypertrophic cardiomyopathy [Unknown]
  - Cardiac failure congestive [Unknown]
  - Maculopathy [Not Recovered/Not Resolved]
  - Blindness [Unknown]
  - Blood pressure systolic increased [None]
  - Retinopathy [None]
  - Hypertensive heart disease [None]
